FAERS Safety Report 16543543 (Version 1)
Quarter: 2019Q3

REPORT INFORMATION
  Report Type: Spontaneous
  Country: US (occurrence: US)
  Receive Date: 20190709
  Receipt Date: 20190709
  Transmission Date: 20191004
  Serious: No
  Sender: FDA-Public Use
  Company Number: US-AMGEN-USASP2019107578

PATIENT
  Age: 60 Year
  Sex: Male

DRUGS (16)
  1. LORAZEPAM. [Concomitant]
     Active Substance: LORAZEPAM
  2. TALIMOGENE LAHERPAREPVEC [Suspect]
     Active Substance: TALIMOGENE LAHERPAREPVEC
     Indication: METASTATIC MALIGNANT MELANOMA
     Dosage: UNK
     Route: 026
  3. LEVOTHYROXINE. [Concomitant]
     Active Substance: LEVOTHYROXINE
  4. OXYCODONE [Concomitant]
     Active Substance: OXYCODONE
  5. SILDENAFIL. [Concomitant]
     Active Substance: SILDENAFIL
  6. NIVOLUMAB [Concomitant]
     Active Substance: NIVOLUMAB
     Indication: METASTATIC MALIGNANT MELANOMA
     Dosage: 120 MILLIGRAM, Q2WK
     Route: 042
  7. PAPAVERINE PHENYLETHYL BARBITURATE [Concomitant]
  8. SIMVASTATIN. [Concomitant]
     Active Substance: SIMVASTATIN
  9. OMEPRAZOLE. [Concomitant]
     Active Substance: OMEPRAZOLE
  10. LISINOPRIL. [Concomitant]
     Active Substance: LISINOPRIL
  11. ACETAMINOPHEN. [Concomitant]
     Active Substance: ACETAMINOPHEN
  12. HYDROCHLOROTHIAZIDE. [Concomitant]
     Active Substance: HYDROCHLOROTHIAZIDE
  13. PREDNISONE. [Concomitant]
     Active Substance: PREDNISONE
     Indication: ENTERITIS
     Dosage: 60 MILLIGRAM, QD, LATER TAPERED BY 10 MG PER WEEK
  14. PREDNISONE. [Concomitant]
     Active Substance: PREDNISONE
     Indication: BLOOD CREATININE INCREASED
  15. DOCUSATE SODIUM. [Concomitant]
     Active Substance: DOCUSATE SODIUM
  16. ALPROSTADIL. [Concomitant]
     Active Substance: ALPROSTADIL

REACTIONS (1)
  - Blood creatinine increased [Recovered/Resolved]
